FAERS Safety Report 12310435 (Version 1)
Quarter: 2016Q2

REPORT INFORMATION
  Report Type: Spontaneous
  Country: US (occurrence: None)
  Receive Date: 20160426
  Receipt Date: 20160426
  Transmission Date: 20160815
  Serious: No
  Sender: FDA-Public Use
  Company Number: None

PATIENT
  Age: 38 Year
  Sex: Female
  Weight: 112.04 kg

DRUGS (5)
  1. PREDNISONE, 20 MG WATSON [Suspect]
     Active Substance: PREDNISONE
     Indication: EAR PAIN
     Route: 048
     Dates: start: 20160410, end: 20160415
  2. AZYTHROMYCIN [Concomitant]
     Active Substance: AZITHROMYCIN ANHYDROUS
  3. PREDNISONE, 20 MG WATSON [Suspect]
     Active Substance: PREDNISONE
     Indication: SWELLING
     Route: 048
     Dates: start: 20160410, end: 20160415
  4. PREDNISONE, 20 MG WATSON [Suspect]
     Active Substance: PREDNISONE
     Indication: WEIGHT DECREASED
     Route: 048
     Dates: start: 20160410, end: 20160415
  5. PREDNISONE, 20 MG WATSON [Suspect]
     Active Substance: PREDNISONE
     Indication: TONSILLAR DISORDER
     Route: 048
     Dates: start: 20160410, end: 20160415

REACTIONS (8)
  - Nausea [None]
  - Tremor [None]
  - Mental disorder [None]
  - Weight decreased [None]
  - Agitation [None]
  - Asthenia [None]
  - Aggression [None]
  - Depression [None]

NARRATIVE: CASE EVENT DATE: 20160416
